FAERS Safety Report 9681969 (Version 1)
Quarter: 2013Q4

REPORT INFORMATION
  Report Type: Report from Study
  Country: KR (occurrence: KR)
  Receive Date: 20131111
  Receipt Date: 20131111
  Transmission Date: 20140711
  Serious: Yes (Other)
  Sender: FDA-Public Use
  Company Number: KR-ROCHE-1297090

PATIENT
  Sex: 0

DRUGS (4)
  1. PEG-INTERFERON ALFA 2A [Suspect]
     Indication: CHRONIC HEPATITIS C
     Route: 065
  2. RIBAVIRIN [Suspect]
     Indication: CHRONIC HEPATITIS C
     Dosage: DOSE OF 1,000 MG (FOR PATIENTS WITH BODY WEIGHT {75 KG) OR 1,200 MG (FOR PATIENTS WITH BODY WEIGHT M
     Route: 065
  3. PEG-INTERFERON ALFA 2A [Suspect]
     Indication: CHRONIC HEPATITIS C
     Route: 065
  4. RIBAVIRIN [Suspect]
     Indication: CHRONIC HEPATITIS C
     Dosage: DOSE OF 1,000 MG (FOR PATIENTS WITH BODY WEIGHT {75 KG) OR 1,200 MG (FOR PATIENTS WITH BODY WEIGHT M
     Route: 065

REACTIONS (26)
  - Neutropenia [Unknown]
  - Anaemia [Unknown]
  - Thrombocytopenia [Unknown]
  - Pancytopenia [Unknown]
  - Alanine aminotransferase increased [Unknown]
  - Influenza like illness [Unknown]
  - Gastrointestinal disorder [Unknown]
  - Pruritus [Unknown]
  - Dizziness [Unknown]
  - Asthenia [Unknown]
  - Alopecia [Unknown]
  - Dyspnoea [Unknown]
  - Rash [Unknown]
  - Insomnia [Unknown]
  - Tinnitus [Unknown]
  - Depression [Unknown]
  - Nocturia [Unknown]
  - Anxiety [Unknown]
  - Haematochezia [Unknown]
  - Generalised oedema [Unknown]
  - Decreased appetite [Unknown]
  - Hyperthyroidism [Unknown]
  - Hypothyroidism [Unknown]
  - Vision blurred [Unknown]
  - Muscle spasms [Unknown]
  - Ascites [Unknown]
